FAERS Safety Report 4626685-2 (Version None)
Quarter: 2005Q2

REPORT INFORMATION
  Report Type: 
  Country: None (occurrence: None)
  Receive Date: 20050405
  Receipt Date: 20050324
  Transmission Date: 20051028
  Serious: Yes (Other)
  Sender: FDA-Public Use
  Company Number: US-JNJFOC-20050306292

PATIENT
  Sex: Female

DRUGS (16)
  1. INFLIXIMAB [Suspect]
     Indication: RHEUMATOID ARTHRITIS
     Route: 042
  2. ALBUTEROL [Concomitant]
     Dosage: INHALER
  3. DIOVAN [Concomitant]
  4. FISH OIL [Concomitant]
  5. FUROSEMIDE [Concomitant]
  6. GLUCOTROL [Concomitant]
  7. METHOTREXATE [Concomitant]
  8. NORVASC [Concomitant]
  9. PIROXICAM [Concomitant]
  10. SYNTHROID [Concomitant]
  11. METFORMIN HCL [Concomitant]
  12. ADVIL [Concomitant]
  13. ALEVE [Concomitant]
  14. CYCLOBENZAPRINE HCL [Concomitant]
  15. OSCAL PLUS D [Concomitant]
  16. OSCAL PLUS D [Concomitant]

REACTIONS (2)
  - RASH SCALY [None]
  - SKIN DISORDER [None]
